FAERS Safety Report 4756263-6 (Version None)
Quarter: 2005Q3

REPORT INFORMATION
  Report Type: 
  Country: None (occurrence: None)
  Receive Date: 20050830
  Receipt Date: 20050517
  Transmission Date: 20060218
  Serious: No
  Sender: FDA-Public Use
  Company Number: US-GLAXOSMITHKLINE-A0558976A

PATIENT
  Age: 57 Year
  Sex: Female

DRUGS (11)
  1. WELLBUTRIN [Suspect]
     Indication: DEPRESSION
     Dosage: 300MG PER DAY
     Route: 048
     Dates: start: 20030101
  2. CELEXA [Concomitant]
  3. LORAZEPAM [Concomitant]
  4. GLUCOPHAGE [Concomitant]
  5. GLUCOTROL [Concomitant]
  6. STARLIX [Concomitant]
  7. LIPITOR [Concomitant]
  8. COZAAR [Concomitant]
  9. ANTIHYPERTENSIVE [Concomitant]
  10. DARVOCET [Concomitant]
  11. ASPIRIN [Concomitant]
     Dosage: 81MG PER DAY
     Route: 065

REACTIONS (1)
  - DRUG INEFFECTIVE [None]
